FAERS Safety Report 9625739 (Version 1)
Quarter: 2013Q4

REPORT INFORMATION
  Report Type: Spontaneous
  Country: US (occurrence: US)
  Receive Date: 20131016
  Receipt Date: 20131016
  Transmission Date: 20140711
  Serious: No
  Sender: FDA-Public Use
  Company Number: US-009507513-1310USA006859

PATIENT
  Sex: Male

DRUGS (1)
  1. JANUMET [Suspect]
     Indication: DIABETES MELLITUS
     Dosage: 50/1000MG, ONE TABLET TWICE DAILY
     Route: 048
     Dates: start: 2010, end: 20131009

REACTIONS (2)
  - Diarrhoea [Recovered/Resolved]
  - Skin disorder [Recovered/Resolved]
